FAERS Safety Report 25931463 (Version 1)
Quarter: 2025Q4

REPORT INFORMATION
  Report Type: Spontaneous
  Country: EU (occurrence: EU)
  Receive Date: 20251016
  Receipt Date: 20251016
  Transmission Date: 20260118
  Serious: Yes (Other)
  Sender: CSL BEHRING
  Company Number: None

PATIENT
  Age: 50 Year
  Sex: Female
  Weight: 59 kg

DRUGS (1)
  1. PRIVIGEN [Suspect]
     Active Substance: HUMAN IMMUNOGLOBULIN G
     Indication: Multifocal motor neuropathy
     Dosage: 90 G, QOW
     Route: 042
     Dates: start: 20150215, end: 20250908

REACTIONS (5)
  - Multifocal motor neuropathy [Recovering/Resolving]
  - Treatment delayed [Recovered/Resolved]
  - Product dose omission in error [Recovered/Resolved]
  - Muscular weakness [Recovering/Resolving]
  - Fatigue [Recovering/Resolving]

NARRATIVE: CASE EVENT DATE: 20150819
